FAERS Safety Report 4309820-5 (Version None)
Quarter: 2004Q1

REPORT INFORMATION
  Report Type: 
  Country: None (occurrence: None)
  Receive Date: 20040301
  Receipt Date: 20030915
  Transmission Date: 20041129
  Serious: Yes (Hospitalization)
  Sender: FDA-Public Use
  Company Number: 1427

PATIENT
  Age: 81 Year
  Sex: Female
  Weight: 94 kg

DRUGS (5)
  1. TARGRETIN [Suspect]
     Indication: MYCOSIS FUNGOIDES
     Dosage: 600 MG DAILY PO
     Route: 048
     Dates: start: 20030818, end: 20030825
  2. ROFECOXIB [Suspect]
     Dosage: MG DAILY PO
     Dates: end: 20030817
  3. LANZOPRAZOLE [Concomitant]
  4. PENICILLIN V [Concomitant]
  5. ROFECOXIB [Suspect]
     Dosage: 25 MG DAILY PO
     Route: 048
     Dates: start: 20030828, end: 20030825

REACTIONS (1)
  - RENAL FAILURE ACUTE [None]
